FAERS Safety Report 25220900 (Version 1)
Quarter: 2025Q2

REPORT INFORMATION
  Report Type: Spontaneous
  Country: US (occurrence: US)
  Receive Date: 20250421
  Receipt Date: 20250421
  Transmission Date: 20250717
  Serious: Yes (Other)
  Sender: CHATTEM
  Company Number: US-OPELLA-2025OHG010750

PATIENT
  Sex: Male

DRUGS (1)
  1. ICY HOT MEDICATED, BACK [Suspect]
     Active Substance: MENTHOL
     Indication: Neck pain
     Route: 061

REACTIONS (2)
  - Drug dependence [Unknown]
  - Therapeutic product effect decreased [Unknown]
